FAERS Safety Report 13442767 (Version 1)
Quarter: 2017Q2

REPORT INFORMATION
  Report Type: Report from Study
  Country: CA (occurrence: CA)
  Receive Date: 20170414
  Receipt Date: 20170414
  Transmission Date: 20170830
  Serious: Yes (Other)
  Sender: FDA-Public Use
  Company Number: CA-AMGEN-CANSL2017055443

PATIENT
  Age: 80 Year
  Sex: Female

DRUGS (6)
  1. PROLIA [Suspect]
     Active Substance: DENOSUMAB
     Indication: OSTEOPOROSIS
     Dosage: UNK
     Route: 065
     Dates: start: 20160303
  2. MULTIVITAMIN [Concomitant]
     Active Substance: VITAMINS
     Dosage: OCCASIONALLY
  3. PLAVIX [Concomitant]
     Active Substance: CLOPIDOGREL BISULFATE
  4. LORAZEPAM. [Concomitant]
     Active Substance: LORAZEPAM
     Dosage: UNK UNK, QHS
  5. METOPROLOL. [Concomitant]
     Active Substance: METOPROLOL
  6. PANTOLOC [Concomitant]
     Active Substance: PANTOPRAZOLE SODIUM
     Dosage: UNK UNK, BID

REACTIONS (10)
  - Muscle twitching [Unknown]
  - Diarrhoea [Recovering/Resolving]
  - Malaise [Unknown]
  - Paraesthesia [Unknown]
  - Pruritus [Unknown]
  - Pain in extremity [Unknown]
  - Polypectomy [Unknown]
  - Dry skin [Unknown]
  - Gastrointestinal disorder [Unknown]
  - Rhinorrhoea [Unknown]
